FAERS Safety Report 8871897 (Version 1)
Quarter: 2012Q4

REPORT INFORMATION
  Report Type: 
  Country: US (occurrence: US)
  Receive Date: 20121026
  Receipt Date: 20121026
  Transmission Date: 20130627
  Serious: No
  Sender: FDA-Public Use
  Company Number: US-AMGEN-USASP2012048923

PATIENT
  Age: 56 Year
  Sex: Female
  Weight: 58.96 kg

DRUGS (6)
  1. ENBREL [Suspect]
     Indication: ANKYLOSING SPONDYLITIS
     Dosage: 50 mg, qwk
     Route: 058
  2. GABAPENTIN [Concomitant]
     Dosage: 100 mg, UNK
     Route: 048
  3. HYDROCODONE [Concomitant]
     Dosage: 7.5-500
     Route: 048
  4. VITAMIN D /00107901/ [Concomitant]
     Dosage: 1000 unit, UNK
     Route: 048
  5. CALCIUM +D                         /00944201/ [Concomitant]
     Route: 048
  6. ETODOLAC [Concomitant]
     Dosage: 200 mg, UNK
     Route: 048

REACTIONS (1)
  - Localised infection [Recovered/Resolved]
